FAERS Safety Report 14292764 (Version 1)
Quarter: 2017Q4

REPORT INFORMATION
  Report Type: Spontaneous
  Country: US (occurrence: US)
  Receive Date: 20171215
  Receipt Date: 20171215
  Transmission Date: 20180321
  Serious: No
  Sender: FDA-Public Use
  Company Number: US-BAUSCH-BL-2017-008061

PATIENT
  Age: 71 Year
  Sex: Male

DRUGS (5)
  1. PRAVASTATIN. [Concomitant]
     Active Substance: PRAVASTATIN
     Indication: BLOOD CHOLESTEROL INCREASED
     Route: 048
  2. TIMOLOL GEL FORMING SOLUTION [Suspect]
     Active Substance: TIMOLOL
     Indication: INTRAOCULAR PRESSURE INCREASED
     Dosage: ONE DROP INTO BOTH EYES
     Route: 047
     Dates: start: 201703
  3. VALTREX [Concomitant]
     Active Substance: VALACYCLOVIR HYDROCHLORIDE
     Indication: OPHTHALMIC HERPES SIMPLEX
     Route: 048
  4. ATENOLOL. [Concomitant]
     Active Substance: ATENOLOL
     Indication: ATRIAL FIBRILLATION
     Route: 048
  5. ELIQUIS [Concomitant]
     Active Substance: APIXABAN
     Indication: ATRIAL FIBRILLATION
     Route: 048

REACTIONS (1)
  - Incorrect dose administered [Unknown]

NARRATIVE: CASE EVENT DATE: 201703
